FAERS Safety Report 4614280-0 (Version None)
Quarter: 2005Q1

REPORT INFORMATION
  Report Type: 
  Country: None (occurrence: None)
  Receive Date: 20050315
  Receipt Date: 20050224
  Transmission Date: 20050727
  Serious: Yes (Other)
  Sender: FDA-Public Use
  Company Number: USA050291783

PATIENT
  Sex: Female

DRUGS (6)
  1. CYMBALTA [Suspect]
     Dosage: 60 MG/2 DAY
  2. ZYPREXA [Suspect]
  3. PROZAC [Suspect]
     Dosage: 10 MG
  4. NEURONTIN (GABAPENTIN PFIZER) [Concomitant]
  5. RESTORIL [Concomitant]
  6. SEROQUEL [Concomitant]

REACTIONS (3)
  - ALCOHOL USE [None]
  - AMNESIA [None]
  - LOSS OF CONSCIOUSNESS [None]
